FAERS Safety Report 17654450 (Version 1)
Quarter: 2020Q2

REPORT INFORMATION
  Report Type: Spontaneous
  Country: US (occurrence: US)
  Receive Date: 20200409
  Receipt Date: 20200409
  Transmission Date: 20200713
  Serious: Yes (Life-Threatening, Hospitalization)
  Sender: FDA-Public Use
  Company Number: None

PATIENT
  Age: 85 Year
  Sex: Male
  Weight: 73.03 kg

DRUGS (1)
  1. GABAPENTIN (GABAPENTIN 300MG CAP) [Suspect]
     Active Substance: GABAPENTIN
     Indication: PAIN
     Route: 048
     Dates: start: 20170725, end: 20190604

REACTIONS (4)
  - Cerebral ischaemia [None]
  - Respiratory rate decreased [None]
  - Unresponsive to stimuli [None]
  - Sedation [None]

NARRATIVE: CASE EVENT DATE: 20190604
